FAERS Safety Report 13022806 (Version 4)
Quarter: 2017Q1

REPORT INFORMATION
  Report Type: Report from Study
  Country: JP (occurrence: JP)
  Receive Date: 20161213
  Receipt Date: 20170109
  Transmission Date: 20170428
  Serious: Yes (Hospitalization, Other)
  Sender: FDA-Public Use
  Company Number: JP-CELGENEUS-JPN-2016032919

PATIENT
  Age: 69 Year
  Sex: Male

DRUGS (19)
  1. LENADEX [Suspect]
     Active Substance: DEXAMETHASONE ACETATE
     Indication: PLASMA CELL MYELOMA
     Dosage: 20
     Route: 048
     Dates: start: 20150801, end: 20150822
  2. DEXAMETHASONE IV [Concomitant]
     Active Substance: DEXAMETHASONE
     Dosage: 20
     Route: 041
     Dates: start: 20150928, end: 20151019
  3. LOXOPROFEN [Concomitant]
     Active Substance: LOXOPROFEN
     Indication: PLASMA CELL MYELOMA
     Route: 048
  4. BAKTAR [Concomitant]
     Active Substance: SULFAMETHOXAZOLE\TRIMETHOPRIM
     Indication: PROPHYLAXIS
     Route: 048
  5. POMALYST [Suspect]
     Active Substance: POMALIDOMIDE
     Dosage: 4
     Route: 048
     Dates: start: 20150928, end: 20151001
  6. POMALYST [Suspect]
     Active Substance: POMALIDOMIDE
     Dosage: 3
     Route: 048
     Dates: start: 20151026, end: 20151115
  7. POMALYST [Suspect]
     Active Substance: POMALIDOMIDE
     Indication: PLASMA CELL MYELOMA
     Dosage: 4
     Route: 048
     Dates: start: 20150801, end: 20150821
  8. POMALYST [Suspect]
     Active Substance: POMALIDOMIDE
     Dosage: 3
     Route: 048
     Dates: start: 20151123, end: 20151213
  9. LENADEX [Suspect]
     Active Substance: DEXAMETHASONE ACETATE
     Dosage: 20
     Route: 048
     Dates: start: 20150829, end: 20150829
  10. CALONAL [Concomitant]
     Active Substance: ACETAMINOPHEN
     Indication: PLASMA CELL MYELOMA
     Route: 048
  11. POMALYST [Suspect]
     Active Substance: POMALIDOMIDE
     Dosage: 3
     Route: 048
     Dates: start: 20151005, end: 20151018
  12. DEXAMETHASONE IV [Concomitant]
     Active Substance: DEXAMETHASONE
     Dosage: 20
     Route: 041
     Dates: start: 20151026, end: 20151116
  13. FENTOS [Concomitant]
     Active Substance: FENTANYL
     Indication: PLASMA CELL MYELOMA
     Route: 062
  14. DEXAMETHASONE IV [Concomitant]
     Active Substance: DEXAMETHASONE
     Indication: PLASMA CELL MYELOMA
     Dosage: 40
     Route: 041
     Dates: start: 20150905, end: 20150905
  15. BAYASPIRIN [Concomitant]
     Active Substance: ASPIRIN
     Indication: PROPHYLAXIS
     Dosage: 100
     Route: 048
     Dates: start: 20150704, end: 20160107
  16. OXINORM [Concomitant]
     Active Substance: OXYCODONE HYDROCHLORIDE
     Indication: PLASMA CELL MYELOMA
     Route: 048
  17. POMALYST [Suspect]
     Active Substance: POMALIDOMIDE
     Dosage: 4
     Route: 048
     Dates: start: 20150829, end: 20150918
  18. LENADEX [Suspect]
     Active Substance: DEXAMETHASONE ACETATE
     Dosage: 20
     Route: 048
     Dates: start: 20151123, end: 20151214
  19. DEXAMETHASONE IV [Concomitant]
     Active Substance: DEXAMETHASONE
     Dosage: 20
     Route: 041
     Dates: start: 20150912, end: 20150919

REACTIONS (5)
  - Hepatic function abnormal [Recovered/Resolved]
  - Haemoglobin decreased [Unknown]
  - Pneumonia [Recovered/Resolved]
  - Pyrexia [Recovered/Resolved]
  - Somnolence [Recovered/Resolved]

NARRATIVE: CASE EVENT DATE: 20150917
